FAERS Safety Report 6073216-9 (Version None)
Quarter: 2009Q1

REPORT INFORMATION
  Report Type: 
  Country: None (occurrence: None)
  Receive Date: 20090211
  Receipt Date: 20081219
  Transmission Date: 20090719
  Serious: No
  Sender: FDA-Public Use
  Company Number: A0750802A

PATIENT
  Age: 61 Year
  Sex: Male

DRUGS (3)
  1. ALTABAX [Suspect]
     Route: 061
     Dates: start: 20080929, end: 20081003
  2. VITAMINS [Concomitant]
  3. ASPIRIN [Concomitant]

REACTIONS (2)
  - DRUG INEFFECTIVE [None]
  - FURUNCLE [None]
